FAERS Safety Report 10553967 (Version 1)
Quarter: 2014Q4

REPORT INFORMATION
  Report Type: Spontaneous
  Country: US (occurrence: None)
  Receive Date: 20141029
  Receipt Date: 20141029
  Transmission Date: 20150529
  Serious: Yes (Hospitalization)
  Sender: FDA-Public Use
  Company Number: None

PATIENT
  Age: 71 Year
  Sex: Male
  Weight: 81.4 kg

DRUGS (2)
  1. VANCOMYCIN [Suspect]
     Active Substance: VANCOMYCIN
     Indication: KNEE ARTHROPLASTY
     Route: 042
     Dates: start: 20140428, end: 20140515
  2. VANCOMYCIN [Suspect]
     Active Substance: VANCOMYCIN
     Indication: INFECTION
     Route: 042
     Dates: start: 20140428, end: 20140515

REACTIONS (5)
  - Erythema [None]
  - Rash maculo-papular [None]
  - Pruritus [None]
  - Red man syndrome [None]
  - Urticaria [None]

NARRATIVE: CASE EVENT DATE: 20140519
